FAERS Safety Report 23604673 (Version 3)
Quarter: 2024Q2

REPORT INFORMATION
  Report Type: Report from Study
  Country: US (occurrence: US)
  Receive Date: 20240307
  Receipt Date: 20240507
  Transmission Date: 20240716
  Serious: Yes (Death, Hospitalization)
  Sender: FDA-Public Use
  Company Number: US-INSMED, INC.-2022-02409-US

PATIENT
  Sex: Female

DRUGS (2)
  1. ARIKAYCE [Suspect]
     Active Substance: AMIKACIN
     Indication: Mycobacterium avium complex infection
     Dosage: 590 MILLIGRAM, QD
     Route: 055
     Dates: start: 20220823, end: 2022
  2. ARIKAYCE [Suspect]
     Active Substance: AMIKACIN
     Dosage: 590 MILLIGRAM, QD, NOT DOING FULL DOSE
     Route: 055
     Dates: start: 20230815

REACTIONS (17)
  - Hospitalisation [Unknown]
  - Death [Fatal]
  - Drug intolerance [Unknown]
  - Sputum decreased [Unknown]
  - Rales [Unknown]
  - Adverse drug reaction [Unknown]
  - Cough [Unknown]
  - Malaise [Unknown]
  - Asthenia [Unknown]
  - Illness [Unknown]
  - Haemoptysis [Unknown]
  - Product dose omission issue [Unknown]
  - Intentional underdose [Unknown]
  - Off label use [Unknown]
  - Therapy interrupted [Unknown]
  - Drug ineffective [Unknown]
  - Device use issue [Unknown]

NARRATIVE: CASE EVENT DATE: 20220101
